FAERS Safety Report 24704531 (Version 1)
Quarter: 2024Q4

REPORT INFORMATION
  Report Type: Spontaneous
  Country: US (occurrence: None)
  Receive Date: 20241206
  Receipt Date: 20241206
  Transmission Date: 20250115
  Serious: Yes (Other)
  Sender: Alvotech
  Company Number: US-ALVOTECHPMS-2024-ALVOTECHPMS-002695

PATIENT
  Age: 47 Year
  Sex: Male

DRUGS (8)
  1. ADALIMUMAB [Suspect]
     Active Substance: ADALIMUMAB
     Indication: Iridocyclitis
     Dosage: 40 MG EVERY 2 WEEKS
     Route: 058
  2. METHOTREXATE [Suspect]
     Active Substance: METHOTREXATE
     Indication: Iridocyclitis
     Dosage: 7.5MG WEEKLY
  3. PREDNISONE [Concomitant]
     Active Substance: PREDNISONE
     Indication: Iridocyclitis
     Dosage: 60 MG DAILY
     Route: 048
  4. PREDNISONE [Concomitant]
     Active Substance: PREDNISONE
     Indication: Iridocyclitis
     Dosage: 20 MG DAILY
     Route: 048
  5. PREDNISONE [Concomitant]
     Active Substance: PREDNISONE
     Indication: Iridocyclitis
     Dosage: RESTARTED AT A LOW DOSE OF 7.5 MG DAILY
     Route: 048
  6. PREDNISONE [Concomitant]
     Active Substance: PREDNISONE
     Indication: Iridocyclitis
     Dosage: 5 MG DAILY
     Route: 048
  7. PREDNISONE [Concomitant]
     Active Substance: PREDNISONE
     Indication: Iridocyclitis
     Dosage: RESTARTED ON HIGH DOSE PREDNISONE OF 40 MG DAILY
  8. PREDNISONE [Concomitant]
     Active Substance: PREDNISONE
     Indication: Iridocyclitis
     Dosage: TAPERED TO 15MG DAILY

REACTIONS (2)
  - Drug ineffective [Unknown]
  - Liver sarcoidosis [Unknown]
